FAERS Safety Report 5731010-X (Version None)
Quarter: 2008Q2

REPORT INFORMATION
  Report Type: 
  Country: None (occurrence: None)
  Receive Date: 20080505
  Receipt Date: 20080428
  Transmission Date: 20081010
  Serious: Yes (Death)
  Sender: FDA-Public Use
  Company Number: 2008SP007893

PATIENT
  Age: 62 Year
  Sex: Female

DRUGS (1)
  1. TEMODAR [Suspect]
     Indication: MALIGNANT MELANOMA
     Dosage: 120 MG;QD;PO
     Route: 048

REACTIONS (2)
  - FUNGAL INFECTION [None]
  - VIRAL INFECTION [None]
